FAERS Safety Report 11445346 (Version 2)
Quarter: 2015Q4

REPORT INFORMATION
  Report Type: Report from Study
  Country: JP (occurrence: JP)
  Receive Date: 20150902
  Receipt Date: 20151105
  Transmission Date: 20160304
  Serious: Yes (Hospitalization, Other)
  Sender: FDA-Public Use
  Company Number: JP-ASTELLAS-2013JP006935

PATIENT
  Age: 5 Decade
  Sex: Female
  Weight: 51 kg

DRUGS (17)
  1. PREDONINE [Suspect]
     Active Substance: PREDNISOLONE\PREDNISOLONE ACETATE\PREDNISOLONE SODIUM SUCCINATE
     Route: 048
     Dates: start: 20090127, end: 20090420
  2. ULCERLMIN [Concomitant]
     Active Substance: SUCRALFATE
     Route: 048
  3. TAMIFLU [Concomitant]
     Active Substance: OSELTAMIVIR PHOSPHATE
     Indication: INFLUENZA
     Dosage: UNK UNK, UNKNOWN FREQ.
     Route: 048
  4. AMLODIN [Concomitant]
     Active Substance: AMLODIPINE BESYLATE
     Indication: PRODUCT USED FOR UNKNOWN INDICATION
     Route: 048
  5. LASIX [Concomitant]
     Active Substance: FUROSEMIDE
     Indication: LUPUS NEPHRITIS
     Route: 048
  6. ALDACTONE A [Concomitant]
     Active Substance: SPIRONOLACTONE
     Indication: LUPUS NEPHRITIS
     Dosage: UNK UNK, UNKNOWN FREQ.
     Route: 048
     Dates: end: 20090714
  7. GASMOTIN [Concomitant]
     Active Substance: MOSAPRIDE CITRATE
     Indication: PROPHYLAXIS
     Route: 048
  8. TACROLIMUS. [Suspect]
     Active Substance: TACROLIMUS
     Route: 048
     Dates: start: 20080909, end: 20090126
  9. ALFAROL [Concomitant]
     Active Substance: ALFACALCIDOL
     Indication: PROPHYLAXIS
     Dosage: 1.0 ?G, ONCE DAILY
     Route: 048
  10. ULCERLMIN [Concomitant]
     Active Substance: SUCRALFATE
     Indication: PROPHYLAXIS
     Route: 048
  11. LAC-B [Concomitant]
     Active Substance: BIFIDOBACTERIUM SPP.
     Indication: PROPHYLAXIS
     Route: 048
  12. TACROLIMUS. [Suspect]
     Active Substance: TACROLIMUS
     Route: 048
     Dates: start: 20090127
  13. FLUMETHOLON [Concomitant]
     Active Substance: FLUOROMETHOLONE
     Indication: IRITIS
     Dosage: UNK UNK, UNKNOWN FREQ.
     Route: 047
  14. TACROLIMUS. [Suspect]
     Active Substance: TACROLIMUS
     Indication: LUPUS NEPHRITIS
     Route: 048
     Dates: start: 20080311, end: 20080908
  15. PREDONINE [Suspect]
     Active Substance: PREDNISOLONE\PREDNISOLONE ACETATE\PREDNISOLONE SODIUM SUCCINATE
     Indication: LUPUS NEPHRITIS
     Route: 048
     Dates: end: 20090126
  16. PREDONINE [Suspect]
     Active Substance: PREDNISOLONE\PREDNISOLONE ACETATE\PREDNISOLONE SODIUM SUCCINATE
     Route: 048
     Dates: start: 20090421
  17. LAXOBERON [Concomitant]
     Active Substance: SODIUM PICOSULFATE
     Indication: CONSTIPATION
     Dosage: UNK UNK, UNKNOWN FREQ.
     Route: 048
     Dates: end: 20090714

REACTIONS (3)
  - Iritis [Recovered/Resolved]
  - Osteonecrosis [Recovering/Resolving]
  - Influenza [Recovered/Resolved]

NARRATIVE: CASE EVENT DATE: 201101
